FAERS Safety Report 19434097 (Version 1)
Quarter: 2021Q2

REPORT INFORMATION
  Report Type: Spontaneous
  Country: IT (occurrence: IT)
  Receive Date: 20210618
  Receipt Date: 20210618
  Transmission Date: 20210717
  Serious: Yes (Other)
  Sender: FDA-Public Use
  Company Number: NVSC2021IT135973

PATIENT
  Sex: Female
  Weight: 1.29 kg

DRUGS (6)
  1. PROPOFOL. [Suspect]
     Active Substance: PROPOFOL
     Indication: FOETAL EXPOSURE DURING PREGNANCY
     Dosage: MATERNAL DOSE (UNKNOWN)
     Route: 064
  2. REMIFENTANIL [Suspect]
     Active Substance: REMIFENTANIL
     Indication: FOETAL EXPOSURE DURING PREGNANCY
     Dosage: MATERNAL DOSE (UNKNOWN)
     Route: 064
  3. ENOXAPARIN [Suspect]
     Active Substance: ENOXAPARIN
     Indication: FOETAL EXPOSURE DURING PREGNANCY
     Dosage: MATERNAL DOSE (8000 IU, BID)
     Route: 064
  4. ENOXAPARIN [Suspect]
     Active Substance: ENOXAPARIN
     Dosage: MATERNAL DOSE (6000 IU, QD (POST OPERATIVE))
     Route: 064
  5. ACETYLSALICYLIC ACID [Suspect]
     Active Substance: ASPIRIN
     Indication: FOETAL EXPOSURE DURING PREGNANCY
     Dosage: MATERNAL DOSE (100 MG, QD)
     Route: 064
  6. EPHEDRINE. [Suspect]
     Active Substance: EPHEDRINE
     Indication: FOETAL EXPOSURE DURING PREGNANCY
     Dosage: MATERNAL DOSE (UNKNOWN)
     Route: 064

REACTIONS (2)
  - Premature baby [Unknown]
  - Foetal exposure during pregnancy [Unknown]
